FAERS Safety Report 5204140-9 (Version None)
Quarter: 2007Q1

REPORT INFORMATION
  Report Type: 
  Country: None (occurrence: None)
  Receive Date: 20070110
  Receipt Date: 20051214
  Transmission Date: 20070707
  Serious: No
  Sender: FDA-Public Use
  Company Number: US-BRISTOL-MYERS SQUIBB COMPANY-13214697

PATIENT
  Sex: Male

DRUGS (6)
  1. ABILIFY [Suspect]
     Indication: SCHIZOPHRENIA
     Route: 048
     Dates: start: 20050101
  2. LEVOXYL [Concomitant]
  3. FLAXSEED [Concomitant]
  4. COLACE [Concomitant]
  5. ASCORBIC ACID [Concomitant]
  6. METFORMIN HCL [Concomitant]

REACTIONS (3)
  - CONTUSION [None]
  - NEUROPATHY [None]
  - SLEEP DISORDER [None]
